FAERS Safety Report 9419002 (Version 2)
Quarter: 2013Q3

REPORT INFORMATION
  Report Type: Report from Study
  Country: FR (occurrence: FR)
  Receive Date: 20130725
  Receipt Date: 20130801
  Transmission Date: 20140515
  Serious: Yes (Hospitalization)
  Sender: FDA-Public Use
  Company Number: PHHY2013FR077887

PATIENT
  Sex: Female
  Weight: 64 kg

DRUGS (5)
  1. EXJADE [Suspect]
     Indication: HAEMOCHROMATOSIS
     Dosage: 2 G, QD
     Route: 048
     Dates: start: 20071009
  2. HYDREA [Concomitant]
     Dosage: 1 DF, BID
  3. SPECIAFOLDINE [Concomitant]
     Dosage: 1 DF, BID
  4. SPIRIVA [Concomitant]
     Dosage: 1 DF, QD
  5. TRIATEC [Concomitant]
     Dosage: 5 MG, QD

REACTIONS (1)
  - Lung disorder [Unknown]
